FAERS Safety Report 14347864 (Version 2)
Quarter: 2018Q1

REPORT INFORMATION
  Report Type: Report from Study
  Country: US (occurrence: US)
  Receive Date: 20180103
  Receipt Date: 20180119
  Transmission Date: 20180509
  Serious: Yes (Life-Threatening, Hospitalization, Other)
  Sender: FDA-Public Use
  Company Number: US-CELGENEUS-USA-20171211308

PATIENT
  Age: 49 Year
  Sex: Male
  Weight: 170 kg

DRUGS (73)
  1. ALLOPURINOL. [Concomitant]
     Active Substance: ALLOPURINOL
     Indication: PROPHYLAXIS
     Dosage: 300 MILLIGRAM
     Route: 048
     Dates: start: 20171023
  2. AMIODARONE [Concomitant]
     Active Substance: AMIODARONE
     Dosage: 900 MILLIGRAM
     Route: 041
     Dates: start: 20171123, end: 20171123
  3. AMIODARONE [Concomitant]
     Active Substance: AMIODARONE
     Dosage: 900 MILLIGRAM
     Route: 041
     Dates: start: 20171204, end: 20171204
  4. CARVEDILOL. [Concomitant]
     Active Substance: CARVEDILOL
     Indication: CARDIOMYOPATHY
     Dosage: 12.5 MILLIGRAM
     Route: 048
     Dates: start: 20171016, end: 20171106
  5. DIPHENHYDRAMINE. [Concomitant]
     Active Substance: DIPHENHYDRAMINE
     Indication: PREMEDICATION
     Dosage: 25 MILLIGRAM
     Route: 048
     Dates: start: 20171017
  6. VALACYCLOVIR [Concomitant]
     Active Substance: VALACYCLOVIR HYDROCHLORIDE
     Indication: ANTIVIRAL PROPHYLAXIS
     Dosage: 1000 MILLIGRAM
     Route: 048
     Dates: start: 20171016, end: 20171017
  7. VALACYCLOVIR [Concomitant]
     Active Substance: VALACYCLOVIR HYDROCHLORIDE
     Dosage: 500 MILLIGRAM
     Route: 048
     Dates: start: 20171018, end: 20171022
  8. MULTIVITAMINS [Concomitant]
     Active Substance: VITAMINS
     Indication: SUPPLEMENTATION THERAPY
     Dosage: 1 TABLET
     Route: 048
     Dates: start: 20171015
  9. IPRATROPIUM [Concomitant]
     Active Substance: IPRATROPIUM
     Indication: DYSPNOEA
     Dosage: .5 MILLIGRAM
     Route: 065
     Dates: start: 20171119, end: 20171125
  10. LORAZEPAM. [Concomitant]
     Active Substance: LORAZEPAM
     Indication: SEDATION
     Dosage: 1 MILLIGRAM
     Route: 041
     Dates: start: 20171207
  11. AMIODARONE [Concomitant]
     Active Substance: AMIODARONE
     Dosage: 150 MILLIGRAM
     Route: 041
     Dates: start: 20171204, end: 20171204
  12. FUROSEMIDE. [Concomitant]
     Active Substance: FUROSEMIDE
     Dosage: 1 MILLIGRAM
     Route: 041
     Dates: start: 20171119, end: 20171119
  13. GLIPIZIDE. [Concomitant]
     Active Substance: GLIPIZIDE
     Indication: TYPE 2 DIABETES MELLITUS
     Dosage: 20 MILLIGRAM
     Route: 048
     Dates: start: 20171015
  14. HYDRALAZINE [Concomitant]
     Active Substance: HYDRALAZINE HYDROCHLORIDE
     Indication: FLUID OVERLOAD
     Dosage: 30 MILLIGRAM
     Route: 048
     Dates: start: 20171118, end: 20171128
  15. DEXTROMETHORPHAN [Concomitant]
     Active Substance: DEXTROMETHORPHAN
     Indication: COUGH
     Route: 048
     Dates: start: 20171126
  16. TORSEMIDE. [Concomitant]
     Active Substance: TORSEMIDE
     Indication: FLUID OVERLOAD
     Dosage: 200 MILLIGRAM
     Route: 048
     Dates: start: 20171202, end: 20171207
  17. AMIODARONE [Concomitant]
     Active Substance: AMIODARONE
     Indication: HYPERTENSION
     Dosage: 200 MILLIGRAM
     Route: 048
     Dates: start: 20171020, end: 20171103
  18. BENZONATATE. [Concomitant]
     Active Substance: BENZONATATE
     Dosage: 100 MILLIGRAM
     Route: 048
     Dates: start: 20171117
  19. FUROSEMIDE. [Concomitant]
     Active Substance: FUROSEMIDE
     Indication: FLUID OVERLOAD
     Dosage: 40 MILLIGRAM
     Route: 041
     Dates: start: 20171026, end: 20171027
  20. MIDAZOLAM [Concomitant]
     Active Substance: MIDAZOLAM HYDROCHLORIDE
     Indication: SEDATION
     Dosage: 1 MILLIGRAM
     Route: 041
     Dates: start: 20171023
  21. PROCHLORPERAZINE. [Concomitant]
     Active Substance: PROCHLORPERAZINE
     Indication: NAUSEA
     Dosage: 10 MILLIGRAM
     Route: 048
     Dates: start: 20171031
  22. NYSTATIN. [Concomitant]
     Active Substance: NYSTATIN
     Indication: RASH
     Dosage: 100000 UNIT/GRAM
     Route: 061
     Dates: start: 20171208
  23. FUROSEMIDE. [Concomitant]
     Active Substance: FUROSEMIDE
     Indication: CARDIOMYOPATHY
     Dosage: 60 MILLIGRAM
     Route: 041
     Dates: start: 20171028, end: 20171028
  24. FUROSEMIDE. [Concomitant]
     Active Substance: FUROSEMIDE
     Dosage: 80 MILLIGRAM
     Route: 041
     Dates: start: 20171103, end: 20171103
  25. FUROSEMIDE. [Concomitant]
     Active Substance: FUROSEMIDE
     Dosage: 120 MILLIGRAM
     Route: 048
     Dates: start: 20171201
  26. MAGNESIUM SULFATE. [Concomitant]
     Active Substance: MAGNESIUM SULFATE
     Indication: HYPOMAGNESAEMIA
     Dosage: 2 GRAM
     Route: 041
     Dates: start: 20171017
  27. VALACYCLOVIR [Concomitant]
     Active Substance: VALACYCLOVIR HYDROCHLORIDE
     Dosage: 1000 MILLIGRAM
     Route: 048
     Dates: start: 20171023
  28. FOLIC ACID. [Concomitant]
     Active Substance: FOLIC ACID
     Indication: ANAEMIA
     Dosage: 1 MILLIGRAM
     Route: 048
     Dates: start: 20171015
  29. POTASSIUM CHLORIDE. [Concomitant]
     Active Substance: POTASSIUM CHLORIDE
     Indication: HYPOKALAEMIA
     Dosage: 20 MILLIEQUIVALENTS
     Route: 048
     Dates: start: 20171015
  30. RANITIDINE. [Concomitant]
     Active Substance: RANITIDINE
     Indication: GASTRITIS
     Route: 048
     Dates: start: 20171015
  31. CEFPODOXIME [Concomitant]
     Active Substance: CEFPODOXIME
     Indication: ANTIBIOTIC THERAPY
     Dosage: 400 MILLIGRAM
     Route: 048
     Dates: start: 20171115
  32. HYDRALAZINE [Concomitant]
     Active Substance: HYDRALAZINE HYDROCHLORIDE
     Dosage: 150 MILLIGRAM
     Route: 048
     Dates: start: 20171130, end: 20171201
  33. METOLAZONE. [Concomitant]
     Active Substance: METOLAZONE
     Indication: FLUID OVERLOAD
     Dosage: 5 MILLIGRAM
     Route: 048
     Dates: start: 20171119, end: 20171121
  34. METOLAZONE. [Concomitant]
     Active Substance: METOLAZONE
     Dosage: 2.5 MILLIGRAM
     Route: 048
     Dates: start: 20171128
  35. THIAMINE. [Concomitant]
     Active Substance: THIAMINE
     Indication: SUPPLEMENTATION THERAPY
     Dosage: 100 MILLIGRAM
     Route: 048
     Dates: start: 20171129
  36. TORSEMIDE. [Concomitant]
     Active Substance: TORSEMIDE
     Dosage: 200 MILLIGRAM
     Route: 048
     Dates: start: 20171205, end: 20171207
  37. ACETAMINOPHEN. [Concomitant]
     Active Substance: ACETAMINOPHEN
     Indication: PREMEDICATION
     Dosage: 650 MILLIGRAM
     Route: 048
     Dates: start: 20171017
  38. BENZOCAINE-MENTHOL [Concomitant]
     Indication: COUGH
     Dosage: 6-10MG
     Route: 065
     Dates: start: 20171027
  39. FUROSEMIDE. [Concomitant]
     Active Substance: FUROSEMIDE
     Dosage: 80 MILLIGRAM
     Route: 048
     Dates: start: 20171031, end: 20171106
  40. FUROSEMIDE. [Concomitant]
     Active Substance: FUROSEMIDE
     Dosage: 60 MILLIGRAM
     Route: 041
     Dates: start: 20171102, end: 20171102
  41. FUROSEMIDE. [Concomitant]
     Active Substance: FUROSEMIDE
     Dosage: 160 MILLIGRAM
     Route: 041
     Dates: start: 20171118
  42. MICAFUNGIN [Concomitant]
     Active Substance: MICAFUNGIN
     Indication: ANTIFUNGAL TREATMENT
     Dosage: 100 MILLIGRAM
     Route: 041
     Dates: start: 20171030
  43. ONDANSETRON [Concomitant]
     Active Substance: ONDANSETRON
     Dosage: 16 MILLIGRAM
     Route: 041
     Dates: start: 20171031
  44. TRAMADOL. [Concomitant]
     Active Substance: TRAMADOL
     Indication: ABDOMINAL PAIN
     Dosage: 25 MILLIGRAM
     Route: 048
     Dates: start: 20171023
  45. POTASSIUM CHLORIDE. [Concomitant]
     Active Substance: POTASSIUM CHLORIDE
     Dosage: 40 MILLIEQUIVALENTS
     Route: 048
     Dates: start: 20171119
  46. HYDRALAZINE [Concomitant]
     Active Substance: HYDRALAZINE HYDROCHLORIDE
     Dosage: 225 MILLIGRAM
     Route: 048
     Dates: start: 20171201, end: 20171202
  47. CEFEPIME [Concomitant]
     Active Substance: CEFEPIME HYDROCHLORIDE
     Indication: ANTIBIOTIC THERAPY
     Dosage: 3 GRAM
     Route: 041
     Dates: start: 20171201
  48. BENZONATATE. [Concomitant]
     Active Substance: BENZONATATE
     Indication: COUGH
     Dosage: 100 MILLIGRAM
     Route: 048
     Dates: start: 20171022, end: 20171106
  49. FUROSEMIDE. [Concomitant]
     Active Substance: FUROSEMIDE
     Dosage: 80 MILLIGRAM
     Route: 041
     Dates: start: 20171117, end: 20171118
  50. SENNOSIDES. [Concomitant]
     Active Substance: SENNOSIDES
     Indication: CONSTIPATION
     Dosage: 2 TABLET
     Route: 048
     Dates: start: 20171022
  51. PREDNISONE. [Concomitant]
     Active Substance: PREDNISONE
     Dosage: 20 MILLIGRAM
     Route: 048
     Dates: start: 20171212
  52. AZACITIDINE. [Suspect]
     Active Substance: AZACITIDINE
     Indication: ACUTE MYELOID LEUKAEMIA
     Dosage: 75 MILLIGRAM/SQ. METER
     Route: 041
     Dates: start: 20171027
  53. AMIODARONE [Concomitant]
     Active Substance: AMIODARONE
     Dosage: 150 MILLIGRAM
     Route: 041
     Dates: start: 20171123, end: 20171123
  54. AMIODARONE [Concomitant]
     Active Substance: AMIODARONE
     Dosage: 200 MILLIGRAM
     Route: 048
     Dates: start: 20171124
  55. CARVEDILOL. [Concomitant]
     Active Substance: CARVEDILOL
     Indication: ATRIAL FIBRILLATION
     Dosage: 25 MILLIGRAM
     Route: 048
     Dates: start: 20171117
  56. CARVEDILOL. [Concomitant]
     Active Substance: CARVEDILOL
     Dosage: 75 MILLIGRAM
     Route: 048
     Dates: start: 20171207, end: 20171208
  57. FAMOTIDINE. [Concomitant]
     Active Substance: FAMOTIDINE
     Indication: PREMEDICATION
     Dosage: 20 MILLIGRAM
     Route: 048
     Dates: start: 20171026
  58. FENTANYL. [Concomitant]
     Active Substance: FENTANYL
     Indication: ANAESTHESIA
     Dosage: 50 MICROGRAM
     Route: 041
     Dates: start: 20171023
  59. GUAIFENESIN. [Concomitant]
     Active Substance: GUAIFENESIN
     Indication: COUGH
     Dosage: 10 MILLILITER
     Route: 048
     Dates: start: 20171118
  60. HYDRALAZINE [Concomitant]
     Active Substance: HYDRALAZINE HYDROCHLORIDE
     Indication: CARDIOMYOPATHY
     Dosage: 300 MILLIGRAM
     Route: 048
     Dates: start: 20171202, end: 20171204
  61. FILGRASTIM [Concomitant]
     Active Substance: FILGRASTIM
     Indication: NEUTROPENIA
     Dosage: 480 MICROGRAM
     Route: 058
     Dates: start: 20171129, end: 20171204
  62. PREDNISONE. [Concomitant]
     Active Substance: PREDNISONE
     Indication: GOUT
     Dosage: 40 MILLIGRAM
     Route: 048
     Dates: start: 20171206, end: 20171208
  63. AMIODARONE [Concomitant]
     Active Substance: AMIODARONE
     Indication: ATRIAL FIBRILLATION
     Dosage: 400 MILLIGRAM
     Route: 048
     Dates: start: 20171118, end: 20171118
  64. CARVEDILOL. [Concomitant]
     Active Substance: CARVEDILOL
     Dosage: 50 MILLIGRAM
     Route: 048
     Dates: start: 20171204, end: 20171206
  65. FUROSEMIDE. [Concomitant]
     Active Substance: FUROSEMIDE
     Dosage: 1.5 MILLIGRAM
     Route: 041
     Dates: start: 20171119, end: 20171130
  66. INSULIN ASPART [Concomitant]
     Active Substance: INSULIN ASPART
     Indication: TYPE 2 DIABETES MELLITUS
     Dosage: 1 IU (INTERNATIONAL UNIT)
     Route: 058
     Dates: start: 20171017
  67. LIDOCAINE. [Concomitant]
     Active Substance: LIDOCAINE
     Indication: ANAESTHESIA
     Dosage: 10 MILLIGRAM
     Route: 023
     Dates: start: 20171030
  68. ONDANSETRON [Concomitant]
     Active Substance: ONDANSETRON
     Indication: ANTIEMETIC SUPPORTIVE CARE
     Dosage: 16 MILLIGRAM
     Route: 048
     Dates: start: 20171027, end: 20171030
  69. HYDRALAZINE [Concomitant]
     Active Substance: HYDRALAZINE HYDROCHLORIDE
     Dosage: 75 MILLIGRAM
     Route: 048
     Dates: start: 20171129, end: 20171130
  70. PIPERACILLIN AND TAZOBACTAM [Concomitant]
     Active Substance: PIPERACILLIN SODIUM\TAZOBACTAM SODIUM
     Indication: PSEUDOMONAS TEST POSITIVE
     Dosage: 18 GRAM
     Route: 041
     Dates: start: 20171123, end: 20171201
  71. PREDNISONE. [Concomitant]
     Active Substance: PREDNISONE
     Dosage: 30 MILLIGRAM
     Route: 048
     Dates: start: 20171209, end: 20171211
  72. METOPROLOL TARTRATE. [Concomitant]
     Active Substance: METOPROLOL TARTRATE
     Indication: ATRIAL FIBRILLATION
     Dosage: 50 MILLIGRAM
     Route: 048
     Dates: start: 20171209, end: 20171210
  73. METOPROLOL TARTRATE. [Concomitant]
     Active Substance: METOPROLOL TARTRATE
     Dosage: 100 MILLIGRAM
     Route: 048
     Dates: start: 20171211

REACTIONS (1)
  - Respiratory failure [Recovered/Resolved]

NARRATIVE: CASE EVENT DATE: 20171223
